FAERS Safety Report 7448958-0 (Version None)
Quarter: 2011Q2

REPORT INFORMATION
  Report Type: 
  Country: None (occurrence: None)
  Receive Date: 20110429
  Receipt Date: 20090621
  Transmission Date: 20111010
  Serious: Yes (Hospitalization, Other)
  Sender: FDA-Public Use
  Company Number: DE-GENENTECH-317734

PATIENT
  Age: 67 Year
  Sex: Female

DRUGS (1)
  1. LUCENTIS [Suspect]
     Indication: MACULAR DEGENERATION
     Route: 031

REACTIONS (10)
  - PNEUMONIA [None]
  - VISUAL ACUITY REDUCED [None]
  - INTRAOCULAR MELANOMA [None]
  - EYE INFLAMMATION [None]
  - METAMORPHOPSIA [None]
  - CATARACT [None]
  - VISUAL IMPAIRMENT [None]
  - SKIN PAPILLOMA [None]
  - INTRAOCULAR PRESSURE INCREASED [None]
  - EYE PAIN [None]
